FAERS Safety Report 7280206-7 (Version None)
Quarter: 2011Q1

REPORT INFORMATION
  Report Type: 
  Country: None (occurrence: None)
  Receive Date: 20110208
  Receipt Date: 20110131
  Transmission Date: 20110831
  Serious: Yes (Hospitalization, Other)
  Sender: FDA-Public Use
  Company Number: DE-JNJFOC-20110104540

PATIENT
  Sex: Female
  Weight: 13 kg

DRUGS (4)
  1. ZONISAMIDE [Interacting]
     Indication: EPILEPSY
     Route: 048
     Dates: start: 20100908
  2. TOPAMAX [Suspect]
     Indication: EPILEPSY
     Route: 048
     Dates: start: 20100803
  3. LAMOTRIGINE [Concomitant]
     Indication: EPILEPSY
     Route: 048
  4. CLOBAZAM [Concomitant]
     Indication: EPILEPSY
     Route: 048

REACTIONS (5)
  - OSTEOPOROSIS [None]
  - PATHOLOGICAL FRACTURE [None]
  - METABOLIC ACIDOSIS [None]
  - HAEMOGLOBIN DECREASED [None]
  - DRUG INTERACTION [None]
